FAERS Safety Report 9663810 (Version 1)
Quarter: 2013Q4

REPORT INFORMATION
  Report Type: Spontaneous
  Country: FR (occurrence: FR)
  Receive Date: 20131101
  Receipt Date: 20131101
  Transmission Date: 20140711
  Serious: Yes (Other)
  Sender: FDA-Public Use
  Company Number: FR-NOVOPROD-391135

PATIENT
  Age: 62 Year
  Sex: Female

DRUGS (6)
  1. VICTOZA [Suspect]
     Indication: DIABETES MELLITUS
     Dosage: 1.2 MG, QD
     Route: 058
     Dates: start: 201206, end: 20130526
  2. METFORMINE [Concomitant]
  3. DIAMICRON [Concomitant]
  4. KARDEGIC [Concomitant]
  5. APROVEL [Concomitant]
  6. TAHOR [Concomitant]

REACTIONS (2)
  - Hyperamylasaemia [Recovered/Resolved]
  - Hyperlipasaemia [Recovered/Resolved]
